FAERS Safety Report 7931919-2 (Version None)
Quarter: 2011Q4

REPORT INFORMATION
  Report Type: 
  Country: None (occurrence: None)
  Receive Date: 20111121
  Receipt Date: 20111111
  Transmission Date: 20120403
  Serious: Yes (Hospitalization)
  Sender: FDA-Public Use
  Company Number: US-BAYER-2011-018457

PATIENT
  Age: 33 Year
  Sex: Female
  Weight: 64.399 kg

DRUGS (10)
  1. YAZ [Suspect]
     Indication: CONTRACEPTION
     Dosage: UNK UNK, QD
     Route: 048
     Dates: start: 20080313, end: 20090307
  2. PROMETHAZINE W/ CODEINE [Concomitant]
     Dosage: UNK
     Dates: start: 20090302
  3. ATIVAN [Concomitant]
     Dosage: 5 MG, PRN
  4. AZITHROMYCIN [Concomitant]
     Dosage: 250 MG, UNK
     Dates: start: 20090201
  5. COUMADIN [Concomitant]
  6. YAZ [Suspect]
     Indication: OVARIAN CYST
  7. CEFDINIR [Concomitant]
     Dosage: 300 MG, UNK
     Dates: start: 20090201
  8. ALBUTEROL [Concomitant]
     Dosage: UNK
     Dates: start: 20090201
  9. ACETAMINOPHEN AND OXYCODONE HCL [Concomitant]
     Dosage: UNK
     Dates: start: 20090302
  10. PERCOCET [Concomitant]
     Indication: RIB FRACTURE
     Dosage: UNK UNK, QID
     Dates: start: 20090307

REACTIONS (3)
  - PULMONARY EMBOLISM [None]
  - PELVIC VENOUS THROMBOSIS [None]
  - DEEP VEIN THROMBOSIS [None]
